FAERS Safety Report 9526632 (Version 3)
Quarter: 2013Q4

REPORT INFORMATION
  Report Type: Spontaneous
  Country: US (occurrence: US)
  Receive Date: 20130916
  Receipt Date: 20131021
  Transmission Date: 20140711
  Serious: No
  Sender: FDA-Public Use
  Company Number: US-TEVA-432398USA

PATIENT
  Age: 47 Year
  Sex: Female

DRUGS (2)
  1. COPAXONE [Suspect]
     Indication: MULTIPLE SCLEROSIS
     Dates: start: 20130702, end: 20131010
  2. COPAXONE [Suspect]
     Dates: start: 2013

REACTIONS (5)
  - Gastrointestinal inflammation [Unknown]
  - Malaise [Unknown]
  - Fatigue [Unknown]
  - Fatigue [Unknown]
  - Fatigue [Unknown]
